FAERS Safety Report 18170786 (Version 1)
Quarter: 2020Q3

REPORT INFORMATION
  Report Type: Spontaneous
  Country: DE (occurrence: DE)
  Receive Date: 20200819
  Receipt Date: 20200819
  Transmission Date: 20201103
  Serious: Yes (Hospitalization)
  Sender: FDA-Public Use
  Company Number: DE-MYLANLABS-2020M1071268

PATIENT
  Age: 86 Year
  Sex: Female

DRUGS (15)
  1. FOSTER [Concomitant]
     Active Substance: BECLOMETHASONE\FORMOTEROL
     Dosage: 100|6 ?G, 1?0?1?0
  2. TOUJEO [Concomitant]
     Active Substance: INSULIN GLARGINE
     Dosage: 30 IE, 0?0?0?30, AMPULLEN
     Route: 058
  3. BRETARIS GENUAIR [Concomitant]
     Active Substance: ACLIDINIUM BROMIDE
     Dosage: 322 ?G, 1?0?1?0
  4. EDOXABAN [Suspect]
     Active Substance: EDOXABAN TOSYLATE
     Indication: PRODUCT USED FOR UNKNOWN INDICATION
     Dosage: 60 MG, 1?0?0?0
  5. IPRAMOL [Concomitant]
     Active Substance: ALBUTEROL SULFATE\IPRATROPIUM BROMIDE
     Dosage: 2.5|0.5 MG, 6X
  6. CANDESARTAN. [Concomitant]
     Active Substance: CANDESARTAN
     Dosage: 16 MG, 1?0?0?0
  7. AMLODIPIN                          /00972401/ [Concomitant]
     Active Substance: AMLODIPINE BESYLATE
     Dosage: 5 MG, 0?0?1?0
  8. NALOXONE HYDROCHLORIDE W/TILIDINE PHOSPHATE [Concomitant]
     Dosage: 8|100 MG, 1?0?1?0
  9. PREDNISOLONE. [Suspect]
     Active Substance: PREDNISOLONE
     Indication: PRODUCT USED FOR UNKNOWN INDICATION
     Dosage: 20 MG, 1?0?0?0
  10. PANTOPRAZOL                        /01263201/ [Concomitant]
     Active Substance: PANTOPRAZOLE
     Dosage: 40 MG, 1?0?0?0
  11. SIMVASTATIN. [Concomitant]
     Active Substance: SIMVASTATIN
     Dosage: 20 MG, 0?0?1?0
  12. TORASEMID [Concomitant]
     Active Substance: TORSEMIDE
     Dosage: 5 MG, 1?0?1?0
  13. BENSERAZIDE W/LEVODOPA [Concomitant]
     Active Substance: BENSERAZIDE\LEVODOPA
     Dosage: 25|100 MG, 0?0?1?0
  14. METOPROLOL. [Suspect]
     Active Substance: METOPROLOL
     Indication: PRODUCT USED FOR UNKNOWN INDICATION
     Dosage: 23.75 MG, 1?0?1?0
  15. SITAGLIPTIN [Concomitant]
     Active Substance: SITAGLIPTIN
     Dosage: 40 MG, 1?0?0?0

REACTIONS (4)
  - Internal haemorrhage [Unknown]
  - Haematochezia [Unknown]
  - Arrhythmia [Unknown]
  - Bradycardia [Unknown]
